FAERS Safety Report 10028705 (Version 1)
Quarter: 2014Q1

REPORT INFORMATION
  Report Type: Spontaneous
  Country: US (occurrence: US)
  Receive Date: 20140321
  Receipt Date: 20140321
  Transmission Date: 20141002
  Serious: Yes (Death)
  Sender: FDA-Public Use
  Company Number: US-B.I. PHARMACEUTICALS,INC./RIDGEFIELD-2014-BI-11915BP

PATIENT
  Age: 71 Year
  Sex: Female
  Weight: 77 kg

DRUGS (9)
  1. PRADAXA [Suspect]
     Indication: ATRIAL FIBRILLATION
     Dosage: 300 MG
     Route: 048
     Dates: start: 20110322, end: 20130719
  2. CELECOXIB [Concomitant]
     Indication: OSTEOARTHRITIS
     Route: 048
     Dates: start: 20101005, end: 20110312
  3. CELECOXIB [Concomitant]
     Indication: RHEUMATOID ARTHRITIS
  4. IBUPROFEN [Concomitant]
     Indication: OSTEOARTHRITIS
     Route: 048
     Dates: start: 20101005, end: 20110312
  5. IBUPROFEN [Concomitant]
     Indication: RHEUMATOID ARTHRITIS
  6. NAPROXEN [Concomitant]
     Indication: OSTEOARTHRITIS
     Route: 048
     Dates: start: 20101005, end: 20110312
  7. NAPROXEN [Concomitant]
     Indication: RHEUMATOID ARTHRITIS
  8. ESOMEPRAZOLE (NEXIUM) [Concomitant]
     Indication: GASTRITIS PROPHYLAXIS
     Dosage: 20 MG
     Route: 048
     Dates: start: 20101005, end: 20110312
  9. FENTANYL [Concomitant]
     Dosage: PATCHES
     Route: 065

REACTIONS (10)
  - Multi-organ failure [Fatal]
  - Hypotension [Fatal]
  - Haemorrhage [Fatal]
  - Coagulopathy [Fatal]
  - Colitis [Fatal]
  - Intestinal obstruction [Fatal]
  - Renal failure acute [Fatal]
  - Lactic acidosis [Fatal]
  - Shock [Fatal]
  - Rhabdomyolysis [Fatal]
